FAERS Safety Report 12987835 (Version 3)
Quarter: 2017Q1

REPORT INFORMATION
  Report Type: Report from Study
  Country: GB (occurrence: GB)
  Receive Date: 20161130
  Receipt Date: 20170227
  Transmission Date: 20170428
  Serious: Yes (Hospitalization)
  Sender: FDA-Public Use
  Company Number: PHFR2016GB009340

PATIENT
  Sex: Male

DRUGS (1)
  1. COSENTYX [Suspect]
     Active Substance: SECUKINUMAB
     Indication: PRODUCT USED FOR UNKNOWN INDICATION
     Dosage: 150 MG, UNK
     Route: 065

REACTIONS (13)
  - Pyrexia [Unknown]
  - Fatigue [Unknown]
  - Hyperhidrosis [Unknown]
  - Mouth swelling [Unknown]
  - Malaise [Unknown]
  - Pharyngitis [Unknown]
  - Sepsis [Unknown]
  - Tongue ulceration [Unknown]
  - Mouth ulceration [Unknown]
  - Swelling face [Unknown]
  - Rash [Unknown]
  - Memory impairment [Unknown]
  - General physical health deterioration [Unknown]
